FAERS Safety Report 8998996 (Version 5)
Quarter: 2013Q1

REPORT INFORMATION
  Report Type: Spontaneous
  Country: US (occurrence: US)
  Receive Date: 20130103
  Receipt Date: 20130313
  Transmission Date: 20140127
  Serious: No
  Sender: FDA-Public Use
  Company Number: US-PFIZER INC-2012330989

PATIENT
  Age: 55 Year
  Sex: Female

DRUGS (2)
  1. EPIPEN [Suspect]
     Dosage: UNK
  2. ALEVE [Concomitant]
     Dosage: PRN (AS NEEDED)

REACTIONS (3)
  - Accidental exposure to product [Recovered/Resolved]
  - Product quality issue [Recovered/Resolved]
  - Injection site pain [Recovered/Resolved]
